FAERS Safety Report 7900911-6 (Version None)
Quarter: 2011Q4

REPORT INFORMATION
  Report Type: 
  Country: None (occurrence: None)
  Receive Date: 20111108
  Receipt Date: 20111025
  Transmission Date: 20120403
  Serious: Yes (Hospitalization, Other)
  Sender: FDA-Public Use
  Company Number: CA-ELI_LILLY_AND_COMPANY-CA201110006619

PATIENT
  Sex: Male

DRUGS (4)
  1. VALPROIC ACID [Concomitant]
  2. ATIVAN [Concomitant]
  3. ZYPREXA [Suspect]
     Indication: SCHIZOPHRENIA
     Dosage: 10 MG, BID
     Dates: start: 20070424
  4. ZOPICLONE [Concomitant]

REACTIONS (7)
  - RENAL FAILURE ACUTE [None]
  - VISUAL ACUITY REDUCED [None]
  - BLOOD TRIGLYCERIDES INCREASED [None]
  - BLOOD CHOLESTEROL INCREASED [None]
  - ALOPECIA [None]
  - METABOLIC ACIDOSIS [None]
  - TYPE 2 DIABETES MELLITUS [None]
